FAERS Safety Report 25219303 (Version 1)
Quarter: 2025Q2

REPORT INFORMATION
  Report Type: Spontaneous
  Country: US (occurrence: US)
  Receive Date: 20250421
  Receipt Date: 20250421
  Transmission Date: 20250717
  Serious: Yes (Hospitalization)
  Sender: MYLAN
  Company Number: US-MYLANLABS-2025M1032995

PATIENT
  Age: 15 Year
  Sex: Male

DRUGS (56)
  1. KETOROLAC [Suspect]
     Active Substance: KETOROLAC TROMETHAMINE
     Indication: Status dystonicus
  2. KETOROLAC [Suspect]
     Active Substance: KETOROLAC TROMETHAMINE
     Route: 065
  3. KETOROLAC [Suspect]
     Active Substance: KETOROLAC TROMETHAMINE
     Route: 065
  4. KETOROLAC [Suspect]
     Active Substance: KETOROLAC TROMETHAMINE
  5. METHADONE [Suspect]
     Active Substance: METHADONE HYDROCHLORIDE
     Indication: Status dystonicus
  6. METHADONE [Suspect]
     Active Substance: METHADONE HYDROCHLORIDE
     Route: 065
  7. METHADONE [Suspect]
     Active Substance: METHADONE HYDROCHLORIDE
     Route: 065
  8. METHADONE [Suspect]
     Active Substance: METHADONE HYDROCHLORIDE
  9. AMITRIPTYLINE [Suspect]
     Active Substance: AMITRIPTYLINE
     Indication: Status dystonicus
  10. AMITRIPTYLINE [Suspect]
     Active Substance: AMITRIPTYLINE
     Route: 065
  11. AMITRIPTYLINE [Suspect]
     Active Substance: AMITRIPTYLINE
     Route: 065
  12. AMITRIPTYLINE [Suspect]
     Active Substance: AMITRIPTYLINE
  13. DEXMEDETOMIDINE HYDROCHLORIDE [Suspect]
     Active Substance: DEXMEDETOMIDINE HYDROCHLORIDE
     Indication: Status dystonicus
  14. DEXMEDETOMIDINE HYDROCHLORIDE [Suspect]
     Active Substance: DEXMEDETOMIDINE HYDROCHLORIDE
     Route: 065
  15. DEXMEDETOMIDINE HYDROCHLORIDE [Suspect]
     Active Substance: DEXMEDETOMIDINE HYDROCHLORIDE
     Route: 065
  16. DEXMEDETOMIDINE HYDROCHLORIDE [Suspect]
     Active Substance: DEXMEDETOMIDINE HYDROCHLORIDE
  17. HYOSCYAMINE [Suspect]
     Active Substance: HYOSCYAMINE
     Indication: Status dystonicus
  18. HYOSCYAMINE [Suspect]
     Active Substance: HYOSCYAMINE
     Route: 065
  19. HYOSCYAMINE [Suspect]
     Active Substance: HYOSCYAMINE
     Route: 065
  20. HYOSCYAMINE [Suspect]
     Active Substance: HYOSCYAMINE
  21. KETAMINE [Suspect]
     Active Substance: KETAMINE
     Indication: Status dystonicus
  22. KETAMINE [Suspect]
     Active Substance: KETAMINE
     Route: 065
  23. KETAMINE [Suspect]
     Active Substance: KETAMINE
     Route: 065
  24. KETAMINE [Suspect]
     Active Substance: KETAMINE
  25. DANTROLENE [Suspect]
     Active Substance: DANTROLENE
     Indication: Status dystonicus
  26. DANTROLENE [Suspect]
     Active Substance: DANTROLENE
     Route: 065
  27. DANTROLENE [Suspect]
     Active Substance: DANTROLENE
     Route: 065
  28. DANTROLENE [Suspect]
     Active Substance: DANTROLENE
  29. PRUCALOPRIDE [Suspect]
     Active Substance: PRUCALOPRIDE
     Indication: Status dystonicus
  30. PRUCALOPRIDE [Suspect]
     Active Substance: PRUCALOPRIDE
     Route: 065
  31. PRUCALOPRIDE [Suspect]
     Active Substance: PRUCALOPRIDE
     Route: 065
  32. PRUCALOPRIDE [Suspect]
     Active Substance: PRUCALOPRIDE
  33. HYDROMORPHONE [Suspect]
     Active Substance: HYDROMORPHONE
     Indication: Status dystonicus
  34. HYDROMORPHONE [Suspect]
     Active Substance: HYDROMORPHONE
     Route: 065
  35. HYDROMORPHONE [Suspect]
     Active Substance: HYDROMORPHONE
     Route: 065
  36. HYDROMORPHONE [Suspect]
     Active Substance: HYDROMORPHONE
  37. CYCLOBENZAPRINE [Suspect]
     Active Substance: CYCLOBENZAPRINE
     Indication: Status dystonicus
  38. CYCLOBENZAPRINE [Suspect]
     Active Substance: CYCLOBENZAPRINE
     Route: 065
  39. CYCLOBENZAPRINE [Suspect]
     Active Substance: CYCLOBENZAPRINE
     Route: 065
  40. CYCLOBENZAPRINE [Suspect]
     Active Substance: CYCLOBENZAPRINE
  41. BACLOFEN [Concomitant]
     Active Substance: BACLOFEN
     Indication: Status dystonicus
  42. BACLOFEN [Concomitant]
     Active Substance: BACLOFEN
  43. BACLOFEN [Concomitant]
     Active Substance: BACLOFEN
     Route: 037
  44. BACLOFEN [Concomitant]
     Active Substance: BACLOFEN
     Route: 037
  45. BACLOFEN [Concomitant]
     Active Substance: BACLOFEN
     Dosage: 0.1 MILLIGRAM, QD
  46. BACLOFEN [Concomitant]
     Active Substance: BACLOFEN
     Dosage: 0.1 MILLIGRAM, QD
  47. BACLOFEN [Concomitant]
     Active Substance: BACLOFEN
     Dosage: 0.1 MILLIGRAM, QD
     Route: 037
  48. BACLOFEN [Concomitant]
     Active Substance: BACLOFEN
     Dosage: 0.1 MILLIGRAM, QD
     Route: 037
  49. GABAPENTIN [Concomitant]
     Active Substance: GABAPENTIN
     Indication: Status dystonicus
  50. GABAPENTIN [Concomitant]
     Active Substance: GABAPENTIN
     Route: 065
  51. GABAPENTIN [Concomitant]
     Active Substance: GABAPENTIN
     Route: 065
  52. GABAPENTIN [Concomitant]
     Active Substance: GABAPENTIN
  53. MORPHINE [Concomitant]
     Active Substance: MORPHINE
     Indication: Status dystonicus
  54. MORPHINE [Concomitant]
     Active Substance: MORPHINE
     Route: 037
  55. MORPHINE [Concomitant]
     Active Substance: MORPHINE
     Route: 037
  56. MORPHINE [Concomitant]
     Active Substance: MORPHINE

REACTIONS (2)
  - Drug ineffective [Unknown]
  - Off label use [Unknown]
